FAERS Safety Report 5255897-2 (Version None)
Quarter: 2007Q1

REPORT INFORMATION
  Report Type: 
  Country: None (occurrence: None)
  Receive Date: 20070305
  Receipt Date: 20070223
  Transmission Date: 20070707
  Serious: Yes (Death, Other)
  Sender: FDA-Public Use
  Company Number: DE-ABBOTT-07P-062-0360484-00

PATIENT
  Age: 28 Year
  Sex: Female

DRUGS (1)
  1. VALPROIC ACID [Suspect]
     Indication: MYOCLONIC EPILEPSY AND RAGGED-RED FIBERS
     Dosage: NOT REPORTED

REACTIONS (2)
  - HEPATIC FAILURE [None]
  - HYPOGLYCAEMIA [None]
